FAERS Safety Report 25321844 (Version 1)
Quarter: 2025Q2

REPORT INFORMATION
  Report Type: Spontaneous
  Country: FR (occurrence: FR)
  Receive Date: 20250516
  Receipt Date: 20250516
  Transmission Date: 20250717
  Serious: Yes (Death, Hospitalization, Other)
  Sender: CELLTRION
  Company Number: None

PATIENT

DRUGS (5)
  1. INFLIXIMAB [Suspect]
     Active Substance: INFLIXIMAB
     Indication: Gastrointestinal disorder
     Route: 042
     Dates: start: 202404
  2. OLUMIANT [Suspect]
     Active Substance: BARICITINIB
     Indication: Gastrointestinal disorder
     Route: 048
     Dates: start: 20211129, end: 202403
  3. ENTYVIO [Suspect]
     Active Substance: VEDOLIZUMAB
     Indication: Gastrointestinal disorder
     Route: 042
     Dates: start: 202404
  4. RUXOLITINIB [Suspect]
     Active Substance: RUXOLITINIB
     Indication: Immune reconstitution inflammatory syndrome
     Route: 048
     Dates: start: 20240927
  5. SOLU-MEDROL [Concomitant]
     Active Substance: METHYLPREDNISOLONE SODIUM SUCCINATE

REACTIONS (3)
  - Cardiac arrest [Fatal]
  - Condition aggravated [Fatal]
  - Bronchopulmonary aspergillosis [Not Recovered/Not Resolved]

NARRATIVE: CASE EVENT DATE: 20240502
